FAERS Safety Report 4609406-9 (Version None)
Quarter: 2005Q2

REPORT INFORMATION
  Report Type: 
  Country: None (occurrence: None)
  Receive Date: 20050225
  Receipt Date: 20050103
  Transmission Date: 20051028
  Serious: No
  Sender: FDA-Public Use
  Company Number: 2005US002339

PATIENT
  Age: 57 Year
  Sex: Male
  Weight: 68.4 kg

DRUGS (5)
  1. ALOXI [Suspect]
     Indication: PROPHYLAXIS OF NAUSEA AND VOMITING
     Dosage: 0.25 MG, SINGLE, INTRAVENOUS
     Route: 042
     Dates: start: 20041207, end: 20041207
  2. CISPLATIN [Suspect]
     Indication: CHEMOTHERAPY
     Dosage: 135 MG, SINGLE, INTRAVENOUS
     Route: 042
     Dates: start: 20041207
  3. COMPAZINE [Concomitant]
     Indication: CHEMOTHERAPY
     Dosage: 0.25 MG, SINGLE, INTRAVENOUS; 135 MG, SINGLE, INTRAVENOUS
     Route: 042
     Dates: start: 20041207
  4. FLUOROURACIL [Suspect]
     Indication: CHEMOTHERAPY
     Dosage: 250 MG, 1800 MG, INTRAVENOUS
     Route: 042
     Dates: start: 20041207, end: 20041207
  5. FLUOROURACIL [Suspect]
     Indication: CHEMOTHERAPY
     Dosage: 250 MG, 1800 MG, INTRAVENOUS
     Route: 042
     Dates: start: 20041207, end: 20041211

REACTIONS (3)
  - DRUG INEFFECTIVE [None]
  - NAUSEA [None]
  - VOMITING [None]
